FAERS Safety Report 24550776 (Version 1)
Quarter: 2024Q4

REPORT INFORMATION
  Report Type: Spontaneous
  Country: JP (occurrence: JP)
  Receive Date: 20241025
  Receipt Date: 20241025
  Transmission Date: 20250114
  Serious: Yes (Other)
  Sender: JAZZ
  Company Number: JP-JAZZ PHARMACEUTICALS-2024-JP-014258

PATIENT
  Age: 60 Year
  Sex: Female

DRUGS (1)
  1. DEFITELIO [Suspect]
     Active Substance: DEFIBROTIDE SODIUM
     Indication: Venoocclusive liver disease
     Dosage: UNK
     Route: 042
     Dates: start: 20240824, end: 20240827

REACTIONS (2)
  - Gastrointestinal haemorrhage [Recovered/Resolved]
  - Refractoriness to platelet transfusion [Recovered/Resolved]

NARRATIVE: CASE EVENT DATE: 20240824
